FAERS Safety Report 7708766-X (Version None)
Quarter: 2011Q3

REPORT INFORMATION
  Report Type: 
  Country: None (occurrence: None)
  Receive Date: 20110824
  Receipt Date: 20110824
  Transmission Date: 20111222
  Serious: Yes (Hospitalization)
  Sender: FDA-Public Use
  Company Number: None

PATIENT
  Age: 79 Year
  Sex: Male
  Weight: 83.59 kg

DRUGS (1)
  1. GLIPIZIDE [Suspect]
     Dosage: 5 MG BID PO
     Route: 048
     Dates: start: 20101213

REACTIONS (1)
  - HYPOGLYCAEMIA [None]
